FAERS Safety Report 20762953 (Version 2)
Quarter: 2023Q1

REPORT INFORMATION
  Report Type: Other
  Country: US (occurrence: None)
  Receive Date: 20220428
  Receipt Date: 20230210
  Transmission Date: 20230418
  Serious: No
  Sender: FDA-Public Use
  Company Number: US-ROCHE-3084208

PATIENT
  Age: 73 Year
  Sex: Female

DRUGS (1)
  1. OCREVUS [Suspect]
     Active Substance: OCRELIZUMAB
     Indication: Secondary progressive multiple sclerosis
     Dosage: 300 MG AT DAY 0 AND 15, DATE OF TREATMENT 25/OCT/2022
     Route: 042
     Dates: start: 20200221

REACTIONS (4)
  - Drug ineffective [Unknown]
  - Asthenia [Not Recovered/Not Resolved]
  - COVID-19 [Unknown]
  - Weight increased [Unknown]
